FAERS Safety Report 10654118 (Version 4)
Quarter: 2015Q1

REPORT INFORMATION
  Report Type: Spontaneous
  Country: JP (occurrence: JP)
  Receive Date: 20141216
  Receipt Date: 20150202
  Transmission Date: 20150720
  Serious: Yes (Hospitalization)
  Sender: FDA-Public Use
  Company Number: PHHY2014JP160796

PATIENT
  Age: 76 Year
  Sex: Male

DRUGS (13)
  1. IMATINIB [Suspect]
     Active Substance: IMATINIB
     Indication: CHRONIC MYELOID LEUKAEMIA
     Dosage: 200 MG, QD
     Route: 048
     Dates: start: 20130222, end: 20130303
  2. WARFARIN [Interacting]
     Active Substance: WARFARIN
     Indication: CARDIOVASCULAR EVENT PROPHYLAXIS
     Dosage: 1.5 MG, QD
     Route: 048
     Dates: end: 20130430
  3. UNASYN [Concomitant]
     Active Substance: AMPICILLIN SODIUM\SULBACTAM SODIUM
     Indication: PRODUCT USED FOR UNKNOWN INDICATION
     Dosage: 1.5 G, UNK
     Route: 065
     Dates: start: 20130522, end: 20130527
  4. WARFARIN [Interacting]
     Active Substance: WARFARIN
     Dosage: 2 MG, QD
     Route: 048
     Dates: start: 201309
  5. IMATINIB [Interacting]
     Active Substance: IMATINIB
     Dosage: 300 MG, QD
     Route: 048
     Dates: start: 20130404, end: 20130518
  6. WARFARIN [Interacting]
     Active Substance: WARFARIN
     Dosage: 1.5 MG, QD
     Route: 048
     Dates: start: 20130501, end: 20130501
  7. WARFARIN [Interacting]
     Active Substance: WARFARIN
     Dosage: 1.5 MG, QD
     Route: 048
     Dates: start: 20130528
  8. IMATINIB [Interacting]
     Active Substance: IMATINIB
     Dosage: 200 MG, QD
     Route: 048
     Dates: start: 20130313, end: 20130403
  9. IMATINIB [Interacting]
     Active Substance: IMATINIB
     Dosage: 100 MG, QD
     Route: 048
     Dates: start: 20130527
  10. MAXIPIME [Concomitant]
     Active Substance: CEFEPIME HYDROCHLORIDE
     Indication: PRODUCT USED FOR UNKNOWN INDICATION
     Dosage: 1000 MG, UNK
     Route: 065
     Dates: start: 20130517, end: 20130521
  11. IMATINIB [Interacting]
     Active Substance: IMATINIB
     Dosage: 300 MG, QD
     Route: 048
     Dates: start: 20130304, end: 20130312
  12. WARFARIN [Interacting]
     Active Substance: WARFARIN
     Dosage: 1.75 MG, QD
     Route: 048
     Dates: end: 20130430
  13. WARFARIN [Interacting]
     Active Substance: WARFARIN
     Dosage: 1.5 MG, QD
     Route: 048
     Dates: start: 20130503, end: 20130526

REACTIONS (6)
  - Drug interaction [Unknown]
  - Liver disorder [Recovered/Resolved]
  - Therapeutic response decreased [Unknown]
  - Chemotherapeutic drug level increased [Recovered/Resolved]
  - International normalised ratio increased [Recovered/Resolved]
  - Pneumonia [Recovered/Resolved]

NARRATIVE: CASE EVENT DATE: 20130306
